FAERS Safety Report 14964271 (Version 1)
Quarter: 2018Q2

REPORT INFORMATION
  Report Type: Spontaneous
  Country: GB (occurrence: GB)
  Receive Date: 20180601
  Receipt Date: 20180601
  Transmission Date: 20180711
  Serious: Yes (Hospitalization, Other)
  Sender: FDA-Public Use
  Company Number: GB-TEVA-2018-GB-899258

PATIENT
  Age: 79 Year
  Sex: Male
  Weight: 72 kg

DRUGS (5)
  1. ERYTHROMYCIN. [Suspect]
     Active Substance: ERYTHROMYCIN
     Route: 065
  2. EUMOVATE [Concomitant]
     Active Substance: CLOBETASONE BUTYRATE
     Indication: ECZEMA
     Dosage: APPLY A THIN LAYER ONCE OR TWICE DAILY TO ECZEMA OF TRUNK OR LIMBS.
     Route: 061
     Dates: start: 20180221
  3. AMLODIPINE [Suspect]
     Active Substance: AMLODIPINE BESYLATE
     Route: 048
  4. RIVAROXABAN [Concomitant]
     Active Substance: RIVAROXABAN
     Dosage: 20 MILLIGRAM DAILY;
     Route: 048
     Dates: start: 20180221, end: 20180321
  5. PARACETAMOL [Concomitant]
     Active Substance: ACETAMINOPHEN
     Dosage: 1-2 TABLETS 4 HOURLY. MAXIMUM 8 TABLETS IN 24 HOURS.
     Route: 048
     Dates: start: 20180126

REACTIONS (2)
  - Jaundice [Recovered/Resolved]
  - Hepatitis acute [Recovered/Resolved]

NARRATIVE: CASE EVENT DATE: 20160202
